FAERS Safety Report 19067593 (Version 2)
Quarter: 2021Q3

REPORT INFORMATION
  Report Type: Report from Study
  Country: GB (occurrence: GB)
  Receive Date: 20210329
  Receipt Date: 20210802
  Transmission Date: 20211014
  Serious: Yes (Other)
  Sender: FDA-Public Use
  Company Number: GB-TEVA-2021-GB-1895624

PATIENT
  Age: 40 Year

DRUGS (4)
  1. IFOSFAMIDE. [Suspect]
     Active Substance: IFOSFAMIDE
     Indication: SARCOMA
     Route: 065
  2. FILGRASTIM [Concomitant]
     Active Substance: FILGRASTIM
     Indication: PROPHYLAXIS
     Dosage: ADMINISTERED WITH CYCLE 1 OF CHEMOTHERAPY; COMMENCING 24?72 HOURS POST?CHEMOTHERAPY FOR 5?10 DAYS
     Route: 065
  3. CIPROFLOXACIN. [Concomitant]
     Active Substance: CIPROFLOXACIN
     Indication: ANTIBIOTIC PROPHYLAXIS
     Dosage: 1000 MILLIGRAM DAILY; ADMINISTERED DURING FIRST CYCLE OF CHEMOTHERAPY; DAY 7 TO DAY 15
     Route: 065
  4. DOXORUBICIN [Suspect]
     Active Substance: DOXORUBICIN
     Indication: SARCOMA
     Route: 065

REACTIONS (1)
  - Febrile neutropenia [Unknown]
